FAERS Safety Report 16258067 (Version 1)
Quarter: 2019Q2

REPORT INFORMATION
  Report Type: Spontaneous
  Country: GB (occurrence: GB)
  Receive Date: 20190430
  Receipt Date: 20190430
  Transmission Date: 20190711
  Serious: Yes (Congenital Anomaly, Other)
  Sender: FDA-Public Use
  Company Number: GB-MYLANLABS-2019M1040735

PATIENT
  Age: 71 Year
  Sex: Female
  Weight: 50 kg

DRUGS (3)
  1. CLOMIPRAMINE [Suspect]
     Active Substance: CLOMIPRAMINE
     Dosage: 50 MILLIGRAM (25MG FOR 4 WEEKS THEN INCREASED TO 50MG)
     Route: 048
     Dates: end: 20181017
  2. CLOMIPRAMINE [Suspect]
     Active Substance: CLOMIPRAMINE
     Indication: GENERALISED ANXIETY DISORDER
     Dosage: 25 MILLIGRAM (25MG FOR 4 WEEKS THEN INCREASED TO 50MG)
     Route: 048
     Dates: start: 20180903
  3. BUSPIRONE [Concomitant]
     Active Substance: BUSPIRONE HYDROCHLORIDE
     Dosage: UNK

REACTIONS (3)
  - Hepatitis [Recovered/Resolved]
  - Malaise [Unknown]
  - Jaundice [Unknown]

NARRATIVE: CASE EVENT DATE: 20181008
